FAERS Safety Report 20227790 (Version 1)
Quarter: 2021Q4

REPORT INFORMATION
  Report Type: Spontaneous
  Country: NL (occurrence: NL)
  Receive Date: 20211224
  Receipt Date: 20211224
  Transmission Date: 20220303
  Serious: Yes (Hospitalization)
  Sender: FDA-Public Use
  Company Number: None

PATIENT
  Age: 65 Year
  Sex: Female

DRUGS (17)
  1. OXYCODONE HYDROCHLORIDE [Suspect]
     Active Substance: OXYCODONE HYDROCHLORIDE
     Indication: Musculoskeletal discomfort
     Dosage: 10 MG, Q12H (STRENGTH 10 MG;2 X PER DAG 1 STUK)
     Route: 065
     Dates: start: 2019, end: 20211130
  2. COSMETICS [Concomitant]
     Active Substance: COSMETICS
     Dosage: UNK (ZALF)
  3. FERROUS FUMARATE [Concomitant]
     Active Substance: FERROUS FUMARATE
     Dosage: UNK (TABLET, 200 MG (MILLIGRAM))
  4. ASCORBINEZUUR [Concomitant]
     Dosage: UNK (TABLET, 500 MG (MILLIGRAM))
  5. THIAMINE [Concomitant]
     Active Substance: THIAMINE
     Dosage: UNK (INJECTIEVLOEISTOF, 50 MG/ML (MILLIGRAM PER MILLILITER))
  6. PANTOPRAZOLE [Concomitant]
     Active Substance: PANTOPRAZOLE
     Dosage: UNK (MAAGSAPRESISTENTE TABLET, 40 MG (MILLIGRAM))
  7. SYMBICORT [Concomitant]
     Active Substance: BUDESONIDE\FORMOTEROL FUMARATE DIHYDRATE
     Dosage: UNK (NIET BEKEND)
  8. ATENOLOL [Concomitant]
     Active Substance: ATENOLOL
     Dosage: UNK (TABLET, 50 MG (MILLIGRAM))
  9. CYANOCOBALAMIN\PYRIDOXINE HYDROCHLORIDE\RIBOFLAVIN\SODIUM PANTOTHENATE [Concomitant]
     Active Substance: CYANOCOBALAMIN\PYRIDOXINE HYDROCHLORIDE\RIBOFLAVIN\SODIUM PANTOTHENATE\THIAMINE HYDROCHLORIDE\VITAMI
     Dosage: UNK (TABLET)
  10. CHOLECALCIFEROL [Concomitant]
     Active Substance: CHOLECALCIFEROL
     Dosage: UNK (CAPSULE, 25000 EENHEDEN)
  11. ENALAPRIL [Concomitant]
     Active Substance: ENALAPRIL
     Dosage: UNK (TABLET, 10 MG (MILLIGRAM))
  12. PREGABALIN [Concomitant]
     Active Substance: PREGABALIN
     Dosage: UNK (CAPSULE, 300 MG (MILLIGRAM))
  13. ACETAMINOPHEN [Concomitant]
     Active Substance: ACETAMINOPHEN
     Dosage: UNK (ZAKJE (GRANULAAT), 500 MG (MILLIGRAM))
  14. ATORVASTATINE                      /01326101/ [Concomitant]
     Dosage: UNK (KAUWTABLET, 20 MG (MILLIGRAM))
  15. HYDROCORTISON                      /00028601/ [Concomitant]
     Dosage: UNK (TABLET, 10 MG (MILLIGRAM))
  16. ALBUTEROL [Concomitant]
     Active Substance: ALBUTEROL
     Dosage: UNK (AEROSOL, 100 MCG/DOSIS (MICROGRAM PER DOSIS))
  17. FUROSEMIDE [Concomitant]
     Active Substance: FUROSEMIDE
     Dosage: UNK (TABLET, 40 MG (MILLIGRAM))

REACTIONS (4)
  - Renal impairment [Recovered/Resolved]
  - Diarrhoea [Recovered/Resolved]
  - Dehydration [Recovered/Resolved]
  - Somnolence [Recovered/Resolved]

NARRATIVE: CASE EVENT DATE: 20211130
